FAERS Safety Report 5526363-1 (Version None)
Quarter: 2007Q4

REPORT INFORMATION
  Report Type: 
  Country: None (occurrence: None)
  Receive Date: 20071121
  Receipt Date: 20071121
  Transmission Date: 20080405
  Serious: Yes (Hospitalization)
  Sender: FDA-Public Use
  Company Number: None

PATIENT
  Age: 53 Year
  Sex: Male

DRUGS (2)
  1. HYDROCHLOROTHIAZIDE [Suspect]
     Indication: HYPERTENSION
     Dosage: 25MG  EVERY DAY  PO
     Route: 048
     Dates: start: 19981203
  2. LISINOPRIL [Suspect]
     Dosage: 40MG  EVERY DAY  PO
     Route: 048
     Dates: start: 19981203

REACTIONS (4)
  - FALL [None]
  - HYPOTENSION [None]
  - HYPOVOLAEMIA [None]
  - SYNCOPE [None]
